FAERS Safety Report 9744468 (Version 2)
Quarter: 2013Q4

REPORT INFORMATION
  Report Type: Spontaneous
  Country: IT (occurrence: IT)
  Receive Date: 20131210
  Receipt Date: 20131223
  Transmission Date: 20140711
  Serious: Yes (Other)
  Sender: FDA-Public Use
  Company Number: IT-TEVA-448052ISR

PATIENT
  Age: 73 Year
  Sex: Female

DRUGS (8)
  1. CARBOPLATINO TEVA [Suspect]
     Dosage: 325 MILLIGRAM DAILY; CONCENTRATE FOR SOLUTION FOR INTRAVENOUS INFUSION
     Route: 042
     Dates: start: 20131119, end: 20131119
  2. CANDESARTAN CILEXETIL [Concomitant]
  3. GLICLAZIDE [Concomitant]
  4. ACENOCUMAROLO [Concomitant]
  5. METFORMINA CLORIDRATO [Concomitant]
  6. ATORVASTATINA [Concomitant]
  7. DURONITRIN 60 MG [Concomitant]
  8. MODURETIC 5 MG + 50 MG [Concomitant]

REACTIONS (2)
  - Hypertensive crisis [Recovered/Resolved]
  - Hot flush [Recovered/Resolved]
